FAERS Safety Report 9028158 (Version 1)
Quarter: 2013Q1

REPORT INFORMATION
  Report Type: Spontaneous
  Country: US (occurrence: None)
  Receive Date: 20130114
  Receipt Date: 20130114
  Transmission Date: 20140127
  Serious: No
  Sender: FDA-Public Use
  Company Number: None

PATIENT
  Age: 32 Year
  Sex: Female
  Weight: 99.79 kg

DRUGS (1)
  1. LAMOTRIGINE [Suspect]

REACTIONS (3)
  - Feeling abnormal [None]
  - Grand mal convulsion [None]
  - Product substitution issue [None]
